FAERS Safety Report 8360616-7 (Version None)
Quarter: 2012Q2

REPORT INFORMATION
  Report Type: 
  Country: None (occurrence: None)
  Receive Date: 20120515
  Receipt Date: 20120507
  Transmission Date: 20120825
  Serious: Yes (Hospitalization, Other)
  Sender: FDA-Public Use
  Company Number: ES-ABBOTT-12P-144-0933388-00

PATIENT
  Age: 73 Year
  Sex: Female

DRUGS (15)
  1. IBUPROFEN [Interacting]
     Indication: RESPIRATORY TRACT INFECTION
     Route: 048
     Dates: start: 20110725, end: 20110730
  2. ACETAMINOPHEN [Concomitant]
     Indication: PRODUCT USED FOR UNKNOWN INDICATION
  3. TARKA [Suspect]
     Indication: HYPERTENSION
     Dosage: 180MG/2MG
     Route: 048
     Dates: end: 20110731
  4. TORSEMIDE [Interacting]
     Indication: HYPERTENSION
     Route: 048
     Dates: end: 20110731
  5. SIMVASTATIN [Concomitant]
     Indication: PRODUCT USED FOR UNKNOWN INDICATION
  6. ATACAND [Interacting]
     Indication: HYPERTENSION
     Route: 048
     Dates: start: 20110201, end: 20110731
  7. BUPRENORPHINE [Concomitant]
     Indication: PRODUCT USED FOR UNKNOWN INDICATION
  8. BUPREX [Concomitant]
     Indication: PRODUCT USED FOR UNKNOWN INDICATION
  9. AMOXICILLIN [Concomitant]
     Indication: RESPIRATORY TRACT INFECTION
     Route: 048
     Dates: start: 20110725, end: 20110730
  10. ATENOLOL [Concomitant]
     Indication: HYPERTENSION
     Route: 048
     Dates: start: 20110401, end: 20110731
  11. PRILOSEC [Concomitant]
     Indication: PRODUCT USED FOR UNKNOWN INDICATION
  12. LEUCOVORIN CALCIUM [Concomitant]
     Indication: PRODUCT USED FOR UNKNOWN INDICATION
  13. METHOTREXATE SODIUM [Concomitant]
     Indication: PRODUCT USED FOR UNKNOWN INDICATION
  14. CLONAZEPAM [Concomitant]
     Indication: PRODUCT USED FOR UNKNOWN INDICATION
  15. DUPHALAC [Concomitant]
     Indication: PRODUCT USED FOR UNKNOWN INDICATION

REACTIONS (6)
  - HYPERKALAEMIA [None]
  - DRUG INTERACTION [None]
  - PYREXIA [None]
  - RESPIRATORY DISORDER [None]
  - RENAL FAILURE ACUTE [None]
  - CONFUSIONAL STATE [None]
